FAERS Safety Report 6129054-1 (Version None)
Quarter: 2009Q1

REPORT INFORMATION
  Report Type: 
  Country: None (occurrence: None)
  Receive Date: 20090324
  Receipt Date: 20090312
  Transmission Date: 20090719
  Serious: Yes (Hospitalization)
  Sender: FDA-Public Use
  Company Number: FR-JNJFOC-20090303673

PATIENT
  Sex: Female

DRUGS (1)
  1. EPITOMAX [Suspect]
     Indication: MIGRAINE PROPHYLAXIS
     Route: 048

REACTIONS (2)
  - ANGLE CLOSURE GLAUCOMA [None]
  - MYOPIA [None]
